FAERS Safety Report 7936905-4 (Version None)
Quarter: 2011Q4

REPORT INFORMATION
  Report Type: 
  Country: None (occurrence: None)
  Receive Date: 20111123
  Receipt Date: 20111114
  Transmission Date: 20120403
  Serious: Yes (Hospitalization)
  Sender: FDA-Public Use
  Company Number: ZA-ASTRAZENECA-2011SE55867

PATIENT
  Age: 60 Year
  Sex: Male

DRUGS (2)
  1. ATACAND HCT [Suspect]
     Indication: HYPERTENSION
     Route: 048
     Dates: end: 20110905
  2. CRESTOR [Suspect]
     Indication: BLOOD CHOLESTEROL INCREASED
     Route: 048
     Dates: end: 20110905

REACTIONS (3)
  - SKIN LESION [None]
  - VASCULITIS [None]
  - RASH [None]
